FAERS Safety Report 8774311 (Version 2)
Quarter: 2013Q4

REPORT INFORMATION
  Report Type: Spontaneous
  Country: FR (occurrence: FR)
  Receive Date: 20120907
  Receipt Date: 20131105
  Transmission Date: 20140711
  Serious: Yes (Hospitalization)
  Sender: FDA-Public Use
  Company Number: FR-009507513-1205FRA00092

PATIENT
  Age: 60 Year
  Sex: Male

DRUGS (6)
  1. ISENTRESS [Suspect]
     Indication: HIV INFECTION
     Dosage: UNK
     Route: 048
     Dates: start: 20110922, end: 20111017
  2. ISENTRESS [Suspect]
     Dosage: UNK
     Route: 048
     Dates: start: 20111020
  3. CELSENTRI [Suspect]
     Indication: HIV INFECTION
     Route: 048
     Dates: start: 20110922, end: 20111017
  4. CELSENTRI [Suspect]
     Route: 048
     Dates: start: 20111017
  5. BACTRIM FORTE [Concomitant]
     Route: 048
     Dates: start: 20110919, end: 20111014
  6. KIVEXA [Concomitant]
     Indication: HIV INFECTION
     Route: 048
     Dates: start: 20110922, end: 20111017

REACTIONS (2)
  - Rash maculo-papular [Recovered/Resolved]
  - Eosinophil count increased [Recovered/Resolved]
